APPROVED DRUG PRODUCT: MONOCID
Active Ingredient: CEFONICID SODIUM
Strength: EQ 1GM BASE/VIAL
Dosage Form/Route: INJECTABLE;INJECTION
Application: A063295 | Product #001
Applicant: GLAXOSMITHKLINE
Approved: Jul 26, 1993 | RLD: No | RS: No | Type: DISCN